FAERS Safety Report 14499989 (Version 1)
Quarter: 2018Q1

REPORT INFORMATION
  Report Type: Not Available
  Country: US (occurrence: US)
  Receive Date: 20180207
  Receipt Date: 20180207
  Transmission Date: 20180509
  Serious: No
  Sender: FDA-Public Use
  Company Number: US-FOUNDATIONCONSUMERHC-2017-US-013355

PATIENT
  Age: 21 Year
  Sex: Female

DRUGS (2)
  1. PLAN B ONE-STEP [Suspect]
     Active Substance: LEVONORGESTREL
     Route: 048
     Dates: start: 201708, end: 201708
  2. PLAN B ONE-STEP [Suspect]
     Active Substance: LEVONORGESTREL
     Route: 048
     Dates: start: 20170920, end: 20170920

REACTIONS (2)
  - Vaginal haemorrhage [Recovered/Resolved]
  - Vaginal discharge [Recovered/Resolved]

NARRATIVE: CASE EVENT DATE: 20171031
